FAERS Safety Report 7737036-9 (Version None)
Quarter: 2011Q3

REPORT INFORMATION
  Report Type: 
  Country: None (occurrence: None)
  Receive Date: 20110908
  Receipt Date: 20110825
  Transmission Date: 20111222
  Serious: Yes (Hospitalization)
  Sender: FDA-Public Use
  Company Number: US-ELI_LILLY_AND_COMPANY-US201106002247

PATIENT
  Sex: Female

DRUGS (12)
  1. ZETIA [Concomitant]
  2. LASIX [Concomitant]
  3. CARAFATE [Concomitant]
  4. VITAMINS NOS [Concomitant]
  5. EFFIENT [Concomitant]
  6. CLONAZEPAM [Concomitant]
  7. FORTEO [Suspect]
     Dosage: 20 UG, QD
  8. FORTEO [Suspect]
     Dosage: 20 UG, QD
     Route: 065
  9. FORTEO [Suspect]
     Indication: OSTEOPOROSIS
     Dosage: 20 UG, QD
     Dates: start: 20110525
  10. STOOL SOFTENER [Concomitant]
  11. CRESTOR [Concomitant]
  12. NEURONTIN [Concomitant]

REACTIONS (19)
  - PNEUMONIA [None]
  - BONE DISORDER [None]
  - CHEST PAIN [None]
  - CALCINOSIS [None]
  - DRY MOUTH [None]
  - INFECTION [None]
  - HEAD DISCOMFORT [None]
  - ARTHRITIS [None]
  - CONTUSION [None]
  - CHILLS [None]
  - NASOPHARYNGITIS [None]
  - HEADACHE [None]
  - DYSPNOEA [None]
  - TREMOR [None]
  - URINARY TRACT INFECTION [None]
  - HEART RATE IRREGULAR [None]
  - PALPITATIONS [None]
  - DIARRHOEA [None]
  - DEHYDRATION [None]
